FAERS Safety Report 8477911-3 (Version None)
Quarter: 2012Q2

REPORT INFORMATION
  Report Type: 
  Country: None (occurrence: None)
  Receive Date: 20120629
  Receipt Date: 20120626
  Transmission Date: 20120825
  Serious: Yes (Other)
  Sender: FDA-Public Use
  Company Number: ES-PFIZER INC-2012154107

PATIENT
  Age: 14 Year
  Sex: Male

DRUGS (1)
  1. SERTRALINE HYDROCHLORIDE [Suspect]
     Indication: DEPRESSION
     Dosage: 50 MG, 1X/DAY
     Route: 048
     Dates: start: 20120601, end: 20120601

REACTIONS (5)
  - STOMATITIS [None]
  - INFECTION [None]
  - OROPHARYNGEAL PLAQUE [None]
  - TONGUE DISCOLOURATION [None]
  - TONGUE EXFOLIATION [None]
